FAERS Safety Report 9227380 (Version 5)
Quarter: 2013Q2

REPORT INFORMATION
  Report Type: Report from Study
  Country: US (occurrence: US)
  Receive Date: 20130412
  Receipt Date: 20130524
  Transmission Date: 20140414
  Serious: Yes (Hospitalization)
  Sender: FDA-Public Use
  Company Number: US-NOVOPROD-375155

PATIENT
  Age: 80 Year
  Sex: Male
  Weight: 95.74 kg

DRUGS (12)
  1. LIRAGLUTIDE FLEXPEN [Suspect]
     Indication: TYPE 2 DIABETES MELLITUS
     Dosage: 1.8 MG, QD
     Route: 058
     Dates: start: 20110906
  2. ASPIRIN [Concomitant]
     Indication: PROPHYLAXIS
     Dosage: 81.0 MG, QD
     Dates: start: 20090806
  3. TORSEMIDE [Concomitant]
     Indication: CARDIAC FAILURE CONGESTIVE
     Dosage: 20.0 MG, QD
     Dates: start: 2009
  4. COUMADIN                           /00014802/ [Concomitant]
     Indication: CARDIAC PACEMAKER INSERTION
     Dosage: 2.5 MG, QD
     Dates: start: 2006, end: 20120817
  5. COUMADIN                           /00014802/ [Concomitant]
     Indication: AORTIC VALVE REPLACEMENT
     Dosage: 7.5 MG, QD
     Dates: start: 20120818
  6. NITRO                              /00003201/ [Concomitant]
     Indication: CORONARY ARTERY DISEASE
     Dosage: 0.4 MG, QD
     Dates: start: 1999
  7. HYDRALAZINE [Concomitant]
     Indication: CARDIAC FAILURE CONGESTIVE
     Dosage: 30.0 MG, QD
     Dates: start: 20120818
  8. ISOSORBIDE DINITRATE [Concomitant]
     Indication: ANGINA PECTORIS
     Dosage: 30.0 MG, QD
     Dates: start: 20120818
  9. ENOXAPARIN [Concomitant]
     Indication: DEEP VEIN THROMBOSIS
     Dosage: 1.7 ML, QD
     Dates: start: 20120818
  10. METOPROLOL TARTRATE [Concomitant]
     Indication: CORONARY ARTERY DISEASE
     Dosage: 50.0 MG, QD
     Dates: start: 20080116
  11. AZITHROMYCIN [Concomitant]
     Indication: PRODUCT USED FOR UNKNOWN INDICATION
     Dosage: 250 MG, QD
     Dates: start: 20120815
  12. CEFTRIAXONE [Concomitant]
     Indication: PRODUCT USED FOR UNKNOWN INDICATION
     Dosage: 2 G IN NACL 100ML, QD
     Route: 042
     Dates: start: 20120815

REACTIONS (1)
  - Cardiac failure congestive [Not Recovered/Not Resolved]
